FAERS Safety Report 6361502-4 (Version None)
Quarter: 2009Q3

REPORT INFORMATION
  Report Type: 
  Country: None (occurrence: None)
  Receive Date: 20090918
  Receipt Date: 20090915
  Transmission Date: 20100115
  Serious: Yes (Other)
  Sender: FDA-Public Use
  Company Number: DE-AVENTIS-200912331DE

PATIENT
  Age: 78 Year
  Sex: Female

DRUGS (1)
  1. ARAVA [Suspect]
     Indication: DRUG USE FOR UNKNOWN INDICATION
     Dosage: DOSE: NOT REPORTED
     Route: 048

REACTIONS (1)
  - GASTRIC HAEMORRHAGE [None]
